FAERS Safety Report 9236253 (Version 1)
Quarter: 2013Q2

REPORT INFORMATION
  Report Type: Spontaneous
  Country: FR (occurrence: FR)
  Receive Date: 20130417
  Receipt Date: 20130417
  Transmission Date: 20140414
  Serious: Yes (Hospitalization, Other)
  Sender: FDA-Public Use
  Company Number: FR-ELI_LILLY_AND_COMPANY-FR201304001368

PATIENT
  Age: 73 Year
  Sex: Female

DRUGS (15)
  1. CYMBALTA [Suspect]
     Indication: NEURALGIA
     Route: 048
  2. ZANIDIP [Concomitant]
     Indication: HYPERTENSION
     Route: 048
  3. COKENZEN [Concomitant]
     Indication: HYPERTENSION
     Route: 048
  4. TOPALGIC LP [Concomitant]
     Indication: NEURALGIA
     Route: 048
  5. NEUROTIN                           /00949202/ [Concomitant]
     Indication: NEURALGIA
     Route: 048
  6. RIVOTRIL [Concomitant]
     Route: 048
  7. LAROXYL [Concomitant]
     Indication: NEURALGIA
     Route: 048
  8. MORPHINE [Concomitant]
     Indication: NEURALGIA
  9. CRESTOR [Concomitant]
  10. TANAKAN [Concomitant]
  11. OROCAL VITAMIN D [Concomitant]
  12. TRANSIPEG [Concomitant]
  13. DAFALGAN [Concomitant]
  14. VOLTARENE [Concomitant]
  15. OGAST [Concomitant]

REACTIONS (9)
  - Pyelonephritis acute [Recovered/Resolved]
  - Syncope [Recovered/Resolved]
  - Head injury [Recovered/Resolved]
  - Fall [Recovered/Resolved]
  - Amnesia [Recovered/Resolved]
  - Inflammation [Recovered/Resolved]
  - Orthostatic hypotension [Recovered/Resolved]
  - Balance disorder [Recovered/Resolved]
  - Off label use [Unknown]
